FAERS Safety Report 5024804-X (Version None)
Quarter: 2006Q2

REPORT INFORMATION
  Report Type: 
  Country: None (occurrence: None)
  Receive Date: 20060613
  Receipt Date: 20060607
  Transmission Date: 20061013
  Serious: Yes (Hospitalization)
  Sender: FDA-Public Use
  Company Number: PHEH2006US07469

PATIENT
  Age: 57 Year
  Sex: Female

DRUGS (2)
  1. ELIDEL [Suspect]
     Indication: ROSACEA
     Route: 061
     Dates: start: 20040101, end: 20060401
  2. FOSAMAX [Concomitant]

REACTIONS (5)
  - COUGH [None]
  - DYSPNOEA [None]
  - NODULE [None]
  - OBSTRUCTIVE AIRWAYS DISORDER [None]
  - THYROID NEOPLASM [None]
